FAERS Safety Report 15602953 (Version 1)
Quarter: 2018Q4

REPORT INFORMATION
  Report Type: Spontaneous
  Country: US (occurrence: US)
  Receive Date: 20181109
  Receipt Date: 20181109
  Transmission Date: 20190205
  Serious: Yes (Other)
  Sender: FDA-Public Use
  Company Number: US-ASTRAZENECA-2018SF44257

PATIENT
  Sex: Female

DRUGS (2)
  1. FASLODEX [Suspect]
     Active Substance: FULVESTRANT
     Indication: BREAST CANCER METASTATIC
     Route: 030
     Dates: start: 201710
  2. IBRANCE [Suspect]
     Active Substance: PALBOCICLIB
     Indication: BREAST CANCER METASTATIC
     Route: 048
     Dates: start: 20180104, end: 20180808

REACTIONS (15)
  - Impaired quality of life [Recovered/Resolved]
  - Metastases to lymph nodes [Unknown]
  - White blood cell count decreased [Recovered/Resolved]
  - Carcinoembryonic antigen decreased [Unknown]
  - Malignant neoplasm progression [Not Recovered/Not Resolved]
  - Neoplasm progression [Unknown]
  - Muscle spasms [Unknown]
  - Tumour marker decreased [Unknown]
  - Herpes zoster [Unknown]
  - Dermal cyst [Unknown]
  - Stomatitis [Unknown]
  - Renal disorder [Unknown]
  - Diarrhoea [Unknown]
  - Sleep disorder due to general medical condition, insomnia type [Unknown]
  - Metastases to spine [Unknown]
